FAERS Safety Report 6043067-X (Version None)
Quarter: 2009Q1

REPORT INFORMATION
  Report Type: 
  Country: None (occurrence: None)
  Receive Date: 20090119
  Receipt Date: 20090112
  Transmission Date: 20090719
  Serious: Yes (Hospitalization, Other)
  Sender: FDA-Public Use
  Company Number: US-BAYER-200839560NA

PATIENT
  Sex: Male

DRUGS (1)
  1. AVELOX [Suspect]
     Indication: GASTROINTESTINAL HAEMORRHAGE
     Dates: start: 20081105, end: 20081108

REACTIONS (3)
  - GASTROINTESTINAL HAEMORRHAGE [None]
  - SHOCK [None]
  - SYNCOPE [None]
